FAERS Safety Report 19063553 (Version 1)
Quarter: 2021Q1

REPORT INFORMATION
  Report Type: Report from Study
  Country: US (occurrence: US)
  Receive Date: 20210326
  Receipt Date: 20210326
  Transmission Date: 20210420
  Serious: Yes (Hospitalization)
  Sender: FDA-Public Use
  Company Number: US-TAKEDA-US-001547

PATIENT
  Age: 31 Year
  Sex: Male

DRUGS (5)
  1. TEDUGLUTIDE [Suspect]
     Active Substance: TEDUGLUTIDE
     Indication: SHORT-BOWEL SYNDROME
     Dosage: 0.4750, QD
     Route: 058
     Dates: start: 20141119
  2. PARENTERAL [Concomitant]
     Dosage: UNK
     Route: 065
  3. TEDUGLUTIDE [Suspect]
     Active Substance: TEDUGLUTIDE
     Indication: SHORT-BOWEL SYNDROME
     Dosage: 0.4750, QD
     Route: 058
     Dates: start: 20141119
  4. TEDUGLUTIDE [Suspect]
     Active Substance: TEDUGLUTIDE
     Indication: SHORT-BOWEL SYNDROME
     Dosage: 0.4750, QD
     Route: 058
     Dates: start: 20141119
  5. TEDUGLUTIDE [Suspect]
     Active Substance: TEDUGLUTIDE
     Indication: SHORT-BOWEL SYNDROME
     Dosage: 0.4750, QD
     Route: 058
     Dates: start: 20141119

REACTIONS (4)
  - Weight increased [Unknown]
  - Frequent bowel movements [Not Recovered/Not Resolved]
  - Blood sodium increased [Unknown]
  - Fluid retention [Unknown]

NARRATIVE: CASE EVENT DATE: 201412
